FAERS Safety Report 5633383-5 (Version None)
Quarter: 2008Q1

REPORT INFORMATION
  Report Type: 
  Country: None (occurrence: None)
  Receive Date: 20080221
  Receipt Date: 20080214
  Transmission Date: 20080703
  Serious: Yes (Other)
  Sender: FDA-Public Use
  Company Number: DE-ASTRAZENECA-2008PK00321

PATIENT
  Age: 60 Year
  Sex: Male

DRUGS (2)
  1. CASODEX [Suspect]
     Indication: PROSTATE CANCER METASTATIC
     Route: 048
     Dates: start: 20071215
  2. GNRH-ANALOGON [Concomitant]
     Indication: PROSTATE CANCER

REACTIONS (2)
  - HEPATOMEGALY [None]
  - TRANSAMINASES INCREASED [None]
